FAERS Safety Report 9286978 (Version 1)
Quarter: 2013Q2

REPORT INFORMATION
  Report Type: Spontaneous
  Country: CA (occurrence: CA)
  Receive Date: 20130513
  Receipt Date: 20130513
  Transmission Date: 20140414
  Serious: Yes (Other)
  Sender: FDA-Public Use
  Company Number: PHHY2013CA045811

PATIENT
  Age: 76 Year
  Sex: Male
  Weight: 76 kg

DRUGS (4)
  1. TELMISARTAN+HYDROCHLOROTHIAZIDE [Suspect]
     Indication: ESSENTIAL HYPERTENSION
     Dosage: 1 DF, QD EVERY MORNING
     Route: 048
     Dates: start: 2012, end: 20130411
  2. HYDROMORPHONE [Interacting]
     Dosage: 3 MG, BID
     Route: 048
  3. OXYCOTIN [Concomitant]
     Indication: BACK PAIN
     Dosage: 10 MG, BID
     Route: 048
  4. VITAMIN B12 [Concomitant]
     Dosage: 1000 UG, QD
     Route: 048

REACTIONS (8)
  - Loss of consciousness [Recovered/Resolved]
  - Pallor [Unknown]
  - Pulse abnormal [Unknown]
  - Asthenia [Recovered/Resolved]
  - Fatigue [Recovered/Resolved]
  - Nausea [Recovered/Resolved]
  - Dizziness [Recovered/Resolved]
  - Drug interaction [Recovered/Resolved]
